FAERS Safety Report 23531296 (Version 1)
Quarter: 2024Q1

REPORT INFORMATION
  Report Type: Spontaneous
  Country: US (occurrence: US)
  Receive Date: 20240216
  Receipt Date: 20240216
  Transmission Date: 20240410
  Serious: Yes (Other)
  Sender: FDA-Public Use
  Company Number: US-PHARMAAND GMBH-2023PHR00118

PATIENT
  Age: 70 Year
  Sex: Male

DRUGS (2)
  1. RUBRACA [Suspect]
     Active Substance: RUCAPARIB CAMSYLATE
     Indication: Prostate cancer
     Dosage: 1200 MILLIGRAM EVERY 1 DAY(S) 600 MILLIGRAM, BID
     Route: 048
     Dates: start: 202308, end: 2023
  2. RUBRACA [Suspect]
     Active Substance: RUCAPARIB CAMSYLATE
     Dosage: 600 MILLIGRAM EVERY 1 DAY(S) 300 MILLIGRAM, BID
     Route: 048
     Dates: start: 2023

REACTIONS (1)
  - Red blood cell count decreased [Unknown]

NARRATIVE: CASE EVENT DATE: 20230801
